FAERS Safety Report 5928040-1 (Version None)
Quarter: 2008Q4

REPORT INFORMATION
  Report Type: 
  Country: None (occurrence: None)
  Receive Date: 20081023
  Receipt Date: 20081021
  Transmission Date: 20090506
  Serious: Yes (Other)
  Sender: FDA-Public Use
  Company Number: A0748559A

PATIENT
  Age: 79 Year
  Sex: Male

DRUGS (7)
  1. ADVAIR DISKUS 100/50 [Suspect]
     Indication: CHRONIC OBSTRUCTIVE PULMONARY DISEASE
     Dosage: 1PUFF TWICE PER DAY
     Route: 055
  2. XOPENEX [Concomitant]
  3. IPRATROPIUM BROMIDE [Concomitant]
  4. METFORMIN [Concomitant]
  5. PREDNISONE TAB [Concomitant]
  6. LEVAQUIN [Concomitant]
  7. CONCURRENT MEDICATIONS [Concomitant]

REACTIONS (5)
  - ADVERSE DRUG REACTION [None]
  - CHOKING [None]
  - DYSPNOEA [None]
  - PRODUCT QUALITY ISSUE [None]
  - PRODUCTIVE COUGH [None]
